FAERS Safety Report 15319804 (Version 1)
Quarter: 2018Q3

REPORT INFORMATION
  Report Type: Spontaneous
  Country: US (occurrence: US)
  Receive Date: 20180827
  Receipt Date: 20180827
  Transmission Date: 20181010
  Serious: No
  Sender: FDA-Public Use
  Company Number: US-TEVA-2018-US-947828

PATIENT
  Age: 91 Year
  Sex: Female

DRUGS (1)
  1. LOSARTAN. [Suspect]
     Active Substance: LOSARTAN
     Route: 065
     Dates: start: 1998

REACTIONS (1)
  - Feeling hot [Unknown]

NARRATIVE: CASE EVENT DATE: 201806
